FAERS Safety Report 13390091 (Version 1)
Quarter: 2017Q1

REPORT INFORMATION
  Report Type: Spontaneous
  Country: US (occurrence: US)
  Receive Date: 20170330
  Receipt Date: 20170330
  Transmission Date: 20170429
  Serious: Yes (Disabling)
  Sender: FDA-Public Use
  Company Number: None

PATIENT
  Age: 57 Year
  Sex: Female
  Weight: 73.35 kg

DRUGS (7)
  1. LOSARTAN POTASSIUM. [Concomitant]
     Active Substance: LOSARTAN POTASSIUM
  2. MONTELUKAST SODIUM. [Concomitant]
     Active Substance: MONTELUKAST SODIUM
  3. MULTIVITAMIN [Concomitant]
     Active Substance: VITAMINS
  4. LEVAQUIN [Suspect]
     Active Substance: LEVOFLOXACIN
     Indication: SINUSITIS
     Dosage: ?          QUANTITY:1 TABLET(S);?
     Route: 048
     Dates: end: 20150320
  5. FLONASE [Concomitant]
     Active Substance: FLUTICASONE PROPIONATE
  6. ATORVASTATIN [Concomitant]
     Active Substance: ATORVASTATIN
  7. COQ10 [Concomitant]
     Active Substance: UBIDECARENONE

REACTIONS (3)
  - Tendon injury [None]
  - Arthropathy [None]
  - Tendon pain [None]

NARRATIVE: CASE EVENT DATE: 20170330
